FAERS Safety Report 7495291-7 (Version None)
Quarter: 2011Q2

REPORT INFORMATION
  Report Type: 
  Country: None (occurrence: None)
  Receive Date: 20110523
  Receipt Date: 20110517
  Transmission Date: 20111010
  Serious: Yes (Life-Threatening)
  Sender: FDA-Public Use
  Company Number: HK-BRISTOL-MYERS SQUIBB COMPANY-15727746

PATIENT
  Age: 51 Year
  Sex: Male
  Weight: 79 kg

DRUGS (4)
  1. FLUOROURACIL [Suspect]
     Indication: COLORECTAL CANCER METASTATIC
     Dosage: NO INF:18-300MG/M2 BOLUS FOLLOWED BY CONT INF1800MG/M2
     Route: 042
     Dates: start: 20100728, end: 20110330
  2. CETUXIMAB [Suspect]
     Indication: COLORECTAL CANCER METASTATIC
     Dosage: STRENGTH:5 MG/ML,NO INF:18
     Route: 042
     Dates: start: 20100728, end: 20110330
  3. LEUCOVORIN CALCIUM [Suspect]
     Indication: COLORECTAL CANCER METASTATIC
     Dosage: NO INF:18
     Route: 042
     Dates: start: 20100728, end: 20110330
  4. IRINOTECAN HCL [Suspect]
     Indication: COLORECTAL CANCER METASTATIC
     Dosage: NO OF INF:18
     Route: 042
     Dates: start: 20100728, end: 20110330

REACTIONS (1)
  - MYOCARDIAL INFARCTION [None]
